FAERS Safety Report 6747773-0 (Version None)
Quarter: 2010Q2

REPORT INFORMATION
  Report Type: 
  Country: None (occurrence: None)
  Receive Date: 20100528
  Receipt Date: 20100517
  Transmission Date: 20101027
  Serious: Yes (Other)
  Sender: FDA-Public Use
  Company Number: US-ELI_LILLY_AND_COMPANY-US201004003166

PATIENT
  Sex: Female
  Weight: 76.19 kg

DRUGS (11)
  1. BYETTA [Suspect]
     Indication: TYPE 2 DIABETES MELLITUS
     Dosage: 5 UG, 2/D
     Dates: start: 20070108, end: 20071126
  2. BYETTA [Suspect]
     Dosage: 10 UG, 2/D
     Dates: start: 20071126, end: 20091214
  3. GLUCOVANCE [Concomitant]
     Indication: DIABETES MELLITUS
     Dosage: 2 D/F, UNK
     Route: 048
     Dates: start: 20070101, end: 20080301
  4. GLUCOVANCE [Concomitant]
     Dosage: 3 D/F, UNK
     Route: 048
     Dates: start: 20080301
  5. ACCUPRIL [Concomitant]
     Indication: DIABETES MELLITUS
     Dosage: 5 MG, UNK
     Route: 048
     Dates: start: 20070101
  6. ASPIRIN [Concomitant]
     Indication: DIABETES MELLITUS
     Dosage: 81 MG, UNK
     Route: 048
     Dates: start: 20070101
  7. MULTI-VITAMIN [Concomitant]
  8. LIPITOR [Concomitant]
     Indication: DIABETES MELLITUS
     Dosage: 10 MG, UNK
     Route: 048
     Dates: start: 20070101, end: 20070201
  9. LIPITOR [Concomitant]
     Dosage: 20 MG, UNK
     Route: 048
     Dates: start: 20070201
  10. SYNTHROID [Concomitant]
  11. TRICOR [Concomitant]
     Indication: DIABETES MELLITUS
     Dosage: 145 MG, UNK
     Route: 048
     Dates: start: 20070101

REACTIONS (2)
  - PANCREATITIS [None]
  - WEIGHT DECREASED [None]
